FAERS Safety Report 4553120-5 (Version None)
Quarter: 2005Q1

REPORT INFORMATION
  Report Type: 
  Country: None (occurrence: None)
  Receive Date: 20050114
  Receipt Date: 20041230
  Transmission Date: 20050727
  Serious: Yes (Death, Life-Threatening, Hospitalization)
  Sender: FDA-Public Use
  Company Number: FR-JNJFOC-20041207598

PATIENT
  Age: 67 Year
  Sex: Female
  Weight: 54 kg

DRUGS (5)
  1. HALDOL [Suspect]
     Indication: DRUG USE FOR UNKNOWN INDICATION
     Route: 049
  2. DI-ANTALVIC [Suspect]
     Route: 049
  3. DI-ANTALVIC [Suspect]
     Route: 049
  4. LEPTICUR [Suspect]
     Indication: DRUG USE FOR UNKNOWN INDICATION
     Route: 049
  5. ATHYMIL [Suspect]
     Route: 049

REACTIONS (9)
  - ANOXIC ENCEPHALOPATHY [None]
  - BRADYPNOEA [None]
  - CARDIAC ARREST [None]
  - COMA [None]
  - DEPRESSED LEVEL OF CONSCIOUSNESS [None]
  - MENDELSON'S SYNDROME [None]
  - NERVOUS SYSTEM DISORDER [None]
  - RESPIRATORY DISORDER [None]
  - STATUS EPILEPTICUS [None]
